FAERS Safety Report 8905960 (Version 1)
Quarter: 2012Q4

REPORT INFORMATION
  Report Type: 
  Country: US (occurrence: US)
  Receive Date: 20121112
  Receipt Date: 20121112
  Transmission Date: 20130627
  Serious: No
  Sender: FDA-Public Use
  Company Number: US-PFIZER INC-2012254959

PATIENT
  Age: 49 Year
  Sex: Female
  Weight: 159 kg

DRUGS (4)
  1. ARTHROTEC [Suspect]
     Indication: ARTHRITIS
     Dosage: 75/200mg two times a day
     Dates: start: 20121101, end: 20121105
  2. ARTHROTEC [Suspect]
     Dosage: UNK
     Dates: start: 20121101, end: 20121105
  3. TRAMADOL [Concomitant]
     Indication: MUSCLE RELAXANT
     Dosage: 50 mg, 2x/day
  4. TRAMADOL [Concomitant]
     Indication: BACK PAIN

REACTIONS (1)
  - Pain [Unknown]
